FAERS Safety Report 14026679 (Version 1)
Quarter: 2017Q3

REPORT INFORMATION
  Report Type: Not Available
  Country: DE (occurrence: DE)
  Receive Date: 20170929
  Receipt Date: 20170929
  Transmission Date: 20171128
  Serious: Yes (Death)
  Sender: FDA-Public Use
  Company Number: DE-ANIPHARMA-2017-DE-000037

PATIENT
  Age: 46 Year
  Sex: Female
  Weight: 120 kg

DRUGS (10)
  1. RISPERIDONE (NON-SPECIFIC) [Suspect]
     Active Substance: RISPERIDONE
  2. LITHIUM CARBONATE (NON-SPECIFIC) [Suspect]
     Active Substance: LITHIUM
  3. TRIAMTERENE. [Suspect]
     Active Substance: TRIAMTERENE
     Dosage: 50MG DAILY
  4. HYDROCHLOROTHIAZIDE. [Suspect]
     Active Substance: HYDROCHLOROTHIAZIDE
     Dosage: 25MG DAILY
  5. VALPROIC ACID (NON-SPECIFIC) [Suspect]
     Active Substance: VALPROIC ACID
  6. HALOPERIDOL. [Suspect]
     Active Substance: HALOPERIDOL
  7. ZUCLOPENTHIXOL [Suspect]
     Active Substance: ZUCLOPENTHIXOL
     Dosage: 500MG EVERY 2 WEEKS
  8. ENALAPRIL [Concomitant]
     Active Substance: ENALAPRIL
     Dosage: 5MG DAILY
  9. LEVOMEPROMAZINE [Suspect]
     Active Substance: LEVOMEPROMAZINE
  10. BIPERIDEN [Suspect]
     Active Substance: BIPERIDEN
     Dosage: 4MG

REACTIONS (4)
  - Ileus paralytic [Fatal]
  - Death [Fatal]
  - Circulatory collapse [Fatal]
  - Megacolon [Fatal]
